FAERS Safety Report 11992894 (Version 1)
Quarter: 2016Q1

REPORT INFORMATION
  Report Type: Spontaneous
  Country: US (occurrence: US)
  Receive Date: 20160203
  Receipt Date: 20160203
  Transmission Date: 20160526
  Serious: No
  Sender: FDA-Public Use
  Company Number: US-UCBSA-2015017920

PATIENT
  Sex: Female

DRUGS (5)
  1. KEPPRA [Suspect]
     Active Substance: LEVETIRACETAM
     Indication: PARTIAL SEIZURES
     Dosage: 500 MG, 2X/DAY (BID)
     Dates: start: 201108
  2. DIAZEPAM. [Concomitant]
     Active Substance: DIAZEPAM
     Indication: PRODUCT USED FOR UNKNOWN INDICATION
     Dosage: 5 MG/ML SOLUTION
  3. LAMICTAL [Concomitant]
     Active Substance: LAMOTRIGINE
     Indication: PARTIAL SEIZURES
     Dosage: WEEK 1+2, 75 MG IN AM/150 MG IN PM
     Dates: start: 20120703
  4. LAMICTAL [Concomitant]
     Active Substance: LAMOTRIGINE
     Dosage: WEEK 3+4: 75 MG, 2X/DAY (BID)
  5. LAMICTAL [Concomitant]
     Active Substance: LAMOTRIGINE
     Dosage: WEEK 5+6: 75 MG, ONCE DAILY (QD)

REACTIONS (4)
  - Fatigue [Unknown]
  - Mood swings [Unknown]
  - Memory impairment [Unknown]
  - Depressed mood [Unknown]
